FAERS Safety Report 17827346 (Version 1)
Quarter: 2020Q2

REPORT INFORMATION
  Report Type: Spontaneous
  Country: US (occurrence: US)
  Receive Date: 20200527
  Receipt Date: 20200527
  Transmission Date: 20200714
  Serious: No
  Sender: FDA-Public Use
  Company Number: US-ASTRAZENECA-2020SE65840

PATIENT
  Sex: Male
  Weight: 95.3 kg

DRUGS (6)
  1. LISINOPRIL. [Concomitant]
     Active Substance: LISINOPRIL
     Indication: HYPERTENSION
     Route: 048
  2. ALLOPURINOL. [Concomitant]
     Active Substance: ALLOPURINOL
     Dosage: 300
  3. BYDUREON [Suspect]
     Active Substance: EXENATIDE
     Indication: TYPE 2 DIABETES MELLITUS
     Route: 058
     Dates: start: 202001
  4. METFORMIN [Concomitant]
     Active Substance: METFORMIN HYDROCHLORIDE
     Dosage: 1000
  5. PRAVASTATIN. [Concomitant]
     Active Substance: PRAVASTATIN
     Dosage: 40
  6. ASPIRIN. [Concomitant]
     Active Substance: ASPIRIN
     Dosage: 81

REACTIONS (5)
  - Intentional device misuse [Not Recovered/Not Resolved]
  - Weight decreased [Unknown]
  - Mass [Recovered/Resolved]
  - Blood glucose increased [Not Recovered/Not Resolved]
  - Device defective [Unknown]
